FAERS Safety Report 14159434 (Version 1)
Quarter: 2017Q4

REPORT INFORMATION
  Report Type: Report from Study
  Country: US (occurrence: US)
  Receive Date: 20171106
  Receipt Date: 20171106
  Transmission Date: 20180321
  Serious: Yes (Hospitalization)
  Sender: FDA-Public Use
  Company Number: US-ROCHE-1689883

PATIENT
  Sex: Male

DRUGS (37)
  1. SERTRALINE [Concomitant]
     Active Substance: SERTRALINE HYDROCHLORIDE
     Dosage: 3 TAB DAILY
     Route: 048
  2. FLONASE [Concomitant]
     Active Substance: FLUTICASONE PROPIONATE
     Dosage: 50 MCG PER ACT 1 OR 2 SPRAYS BY NASAL ROUTE QD
     Route: 065
  3. LUNESTA [Concomitant]
     Active Substance: ESZOPICLONE
     Route: 048
     Dates: start: 20140825, end: 20150112
  4. ALLEGRA [Concomitant]
     Active Substance: FEXOFENADINE HYDROCHLORIDE
     Route: 048
  5. FUROSEMIDE. [Concomitant]
     Active Substance: FUROSEMIDE
     Dosage: 1-2 TAB
     Route: 048
     Dates: start: 20140125
  6. GABAPENTIN. [Concomitant]
     Active Substance: GABAPENTIN
     Dosage: TID 300MG AM , 300 MG AFTERNOON, 600 MG PM
     Route: 048
  7. DELTASONE [Concomitant]
     Active Substance: PREDNISONE
     Dosage: 3 TAB AM AND 3 TAB PM
     Route: 048
  8. ACCOLATE [Concomitant]
     Active Substance: ZAFIRLUKAST
     Route: 048
  9. BREO ELLIPTA [Concomitant]
     Active Substance: FLUTICASONE FUROATE\VILANTEROL TRIFENATATE
     Dosage: 1 PUFF DAILY
     Route: 055
  10. XOLAIR [Suspect]
     Active Substance: OMALIZUMAB
     Indication: ASTHMA
     Dosage: 04/SEP/2015, 18/SEP/2015, 02/OCT/2015, 16/OCT/2015, 30/OCT/2015, 13/NOV/2015, 27/NOV/2015, 31/DEC/20
     Route: 058
  11. SEROQUEL [Concomitant]
     Active Substance: QUETIAPINE FUMARATE
     Route: 048
  12. ZALEPLON. [Concomitant]
     Active Substance: ZALEPLON
     Dosage: TAKE ONE CAPSULE BY MOUTH EVERY NIGHT AT BEDTIME
     Route: 048
     Dates: start: 20141215, end: 20150126
  13. DELTASONE [Concomitant]
     Active Substance: PREDNISONE
     Route: 048
     Dates: start: 20141208, end: 20150112
  14. SYMBICORT [Concomitant]
     Active Substance: BUDESONIDE\FORMOTEROL FUMARATE DIHYDRATE
     Dosage: 160-4.5 MCG   ACT BID 2 PUFFS INHALATION
     Route: 045
  15. VENTOLIN HFA [Concomitant]
     Active Substance: ALBUTEROL SULFATE
  16. CLOBEX (UNITED STATES) [Concomitant]
     Dosage: CLOBEX 0.05 PERCENT APPLY EXTERNALLY
     Route: 065
  17. DELTASONE [Concomitant]
     Active Substance: PREDNISONE
     Dosage: 2 TAB AM AND 2 TAB PM
     Route: 048
  18. SPIRONOLACTONE. [Concomitant]
     Active Substance: SPIRONOLACTONE
     Route: 048
  19. THEO-DUR [Concomitant]
     Active Substance: THEOPHYLLINE ANHYDROUS
     Route: 048
  20. PROVENTIL [Concomitant]
     Active Substance: ALBUTEROL
     Dosage: 90 MCG ACT 2 PUFFS INHALATION
     Route: 045
  21. LEVAQUIN [Concomitant]
     Active Substance: LEVOFLOXACIN
     Route: 048
     Dates: start: 20141208, end: 20150112
  22. DUONEB [Concomitant]
     Active Substance: ALBUTEROL SULFATE\IPRATROPIUM BROMIDE
  23. SERTRALINE [Concomitant]
     Active Substance: SERTRALINE HYDROCHLORIDE
     Dosage: TAKE 1 AND  HALF TAB DAILY
     Route: 048
     Dates: start: 20141216
  24. DELTASONE [Concomitant]
     Active Substance: PREDNISONE
     Dosage: 2 TAB AM AND 1 TAB PM
     Route: 048
  25. DELTASONE [Concomitant]
     Active Substance: PREDNISONE
     Dosage: 1 TAB AM AND 1 TAB PM
     Route: 048
  26. GUAIFENESIN/CODEINE [Concomitant]
     Active Substance: CODEINE PHOSPHATE\GUAIFENESIN
     Dosage: 100-10 MG/5ML 7.5 ML PO BED AS NEEDED FOR COUGH
     Route: 065
     Dates: start: 20141208
  27. COMBIVENT RESPIMAT [Concomitant]
     Active Substance: ALBUTEROL SULFATE\IPRATROPIUM BROMIDE
     Dosage: 20-100 MCG PERACT 1 PUFF BY INHALATION 4 TIMES DAILY
     Route: 065
     Dates: start: 20140120
  28. DELTASONE [Concomitant]
     Active Substance: PREDNISONE
     Dosage: 3 TAB AM AND 2 TAB PM
     Route: 048
  29. DELTASONE [Concomitant]
     Active Substance: PREDNISONE
     Dosage: 1 TAB AM AND THEN DISCONTINUE
     Route: 048
  30. TERBUTALINE [Concomitant]
     Active Substance: TERBUTALINE
     Route: 048
  31. NABUMETONE. [Concomitant]
     Active Substance: NABUMETONE
     Route: 048
     Dates: start: 20120709
  32. DELTASONE [Concomitant]
     Active Substance: PREDNISONE
     Route: 048
  33. EPIPEN [Concomitant]
     Active Substance: EPINEPHRINE
     Route: 058
     Dates: start: 20140224
  34. ZITHROMAX [Concomitant]
     Active Substance: AZITHROMYCIN DIHYDRATE
     Route: 048
  35. TACLONEX [Concomitant]
     Active Substance: BETAMETHASONE DIPROPIONATE\CALCIPOTRIENE\CALCIPOTRIENE HYDRATE
     Dosage: APPLY EXTERNALLY
     Route: 065
  36. CYCLOBENZAPRINE. [Concomitant]
     Active Substance: CYCLOBENZAPRINE
     Route: 048
  37. EPIPEN [Concomitant]
     Active Substance: EPINEPHRINE
     Route: 030

REACTIONS (6)
  - Alopecia [Unknown]
  - Pneumonia [Unknown]
  - Malaise [Unknown]
  - Bronchitis [Unknown]
  - Asthma [Recovered/Resolved]
  - Ecchymosis [Unknown]
